FAERS Safety Report 5270368-5 (Version None)
Quarter: 2007Q1

REPORT INFORMATION
  Report Type: 
  Country: None (occurrence: None)
  Receive Date: 20070320
  Receipt Date: 20070312
  Transmission Date: 20070707
  Serious: Yes (Other)
  Sender: FDA-Public Use
  Company Number: US-ABBOTT-07P-163-0361655-00

PATIENT
  Age: 11 Year
  Sex: Male

DRUGS (9)
  1. VALPROIC ACID [Suspect]
     Indication: MANIA
     Route: 065
  2. VALPROIC ACID [Suspect]
     Route: 065
  3. VALPROIC ACID [Suspect]
     Route: 065
  4. RISPERIDONE [Interacting]
     Indication: AGGRESSION
     Route: 065
  5. RISPERIDONE [Interacting]
     Indication: AGITATION
     Route: 065
  6. RISPERIDONE [Interacting]
     Route: 065
  7. RISPERIDONE [Interacting]
     Route: 065
  8. LITHIUM CARBONATE [Concomitant]
     Indication: PSYCHOTIC DISORDER
     Route: 065
  9. LITHIUM CARBONATE [Concomitant]
     Indication: MANIA
     Dosage: UNKNOWN

REACTIONS (3)
  - DRUG INTERACTION [None]
  - HYPERAMMONAEMIA [None]
  - MANIA [None]
